FAERS Safety Report 8395632-2 (Version None)
Quarter: 2012Q2

REPORT INFORMATION
  Report Type: 
  Country: None (occurrence: None)
  Receive Date: 20120530
  Receipt Date: 20111219
  Transmission Date: 20120825
  Serious: No
  Sender: FDA-Public Use
  Company Number: US-GLAXOSMITHKLINE-A0958654A

PATIENT
  Age: 57 Year
  Sex: Male

DRUGS (5)
  1. PRISTIQ [Concomitant]
  2. LORAZEPAM [Concomitant]
  3. ADVAIR DISKUS 100/50 [Concomitant]
  4. METOPROLOL TARTRATE [Concomitant]
  5. VENTOLIN [Suspect]
     Indication: CHRONIC OBSTRUCTIVE PULMONARY DISEASE
     Dosage: 2PUFF THREE TIMES PER DAY
     Route: 055
     Dates: start: 20110601

REACTIONS (2)
  - DRUG INEFFECTIVE [None]
  - DRUG ADMINISTRATION ERROR [None]
